FAERS Safety Report 10013062 (Version 1)
Quarter: 2014Q1

REPORT INFORMATION
  Report Type: Spontaneous
  Country: US (occurrence: US)
  Receive Date: 20140314
  Receipt Date: 20140314
  Transmission Date: 20141002
  Serious: No
  Sender: FDA-Public Use
  Company Number: US-PFIZER INC-2014073183

PATIENT
  Age: 75 Year
  Sex: Male
  Weight: 97.5 kg

DRUGS (2)
  1. CLINDAMYCIN HCL [Suspect]
     Dosage: 300 MG, UNK
  2. AUGMENTIN [Suspect]
     Dosage: 875-125MG

REACTIONS (1)
  - Drug hypersensitivity [Unknown]
